FAERS Safety Report 24282287 (Version 4)
Quarter: 2024Q4

REPORT INFORMATION
  Report Type: Spontaneous
  Country: US (occurrence: US)
  Receive Date: 20240904
  Receipt Date: 20241030
  Transmission Date: 20250115
  Serious: Yes (Hospitalization, Other)
  Sender: BIOVITRUM
  Company Number: US-BIOVITRUM-2024-US-011575

PATIENT
  Age: 5 Year
  Sex: Female

DRUGS (3)
  1. EMAPALUMAB [Suspect]
     Active Substance: EMAPALUMAB
     Indication: Still^s disease
     Dosage: LOADING DOSE 6 MG/KG AND MAINTENANCE DOSES 3 MG/KG
  2. ANAKINRA [Suspect]
     Active Substance: ANAKINRA
     Indication: Still^s disease
     Dosage: 5 MG/KG Q8 HOURS
  3. ANAKINRA [Suspect]
     Active Substance: ANAKINRA
     Dosage: FOR EVERY 6 HOURS
     Route: 042

REACTIONS (11)
  - Pulmonary hypertension [Unknown]
  - Haemophagocytic lymphohistiocytosis [Unknown]
  - Condition aggravated [Unknown]
  - Respiratory failure [Unknown]
  - Interstitial lung disease [Unknown]
  - Off label use [Unknown]
  - Staphylococcal infection [Unknown]
  - Alpha haemolytic streptococcal infection [Unknown]
  - Norovirus infection [Unknown]
  - Adenovirus infection [Unknown]
  - Epstein-Barr virus infection [Unknown]

NARRATIVE: CASE EVENT DATE: 20240606
